FAERS Safety Report 25937738 (Version 1)
Quarter: 2025Q4

REPORT INFORMATION
  Report Type: Spontaneous
  Country: JP (occurrence: JP)
  Receive Date: 20251018
  Receipt Date: 20251018
  Transmission Date: 20260117
  Serious: Yes (Hospitalization, Other)
  Sender: AMGEN
  Company Number: JP-AMGEN-JPNSP2025203954

PATIENT
  Age: 7 Decade
  Sex: Female

DRUGS (1)
  1. EVENITY [Suspect]
     Active Substance: ROMOSOZUMAB-AQQG
     Indication: Osteoporosis
     Dosage: 210 MILLIGRAM
     Route: 058
     Dates: start: 202401, end: 202406

REACTIONS (3)
  - Unevaluable event [Not Recovered/Not Resolved]
  - Oesophageal carcinoma [Unknown]
  - Femur fracture [Unknown]

NARRATIVE: CASE EVENT DATE: 20240101
